FAERS Safety Report 11572919 (Version 2)
Quarter: 2015Q3

REPORT INFORMATION
  Report Type: Spontaneous
  Country: PL (occurrence: PL)
  Receive Date: 20150929
  Receipt Date: 20150929
  Transmission Date: 20151125
  Serious: Yes (Hospitalization)
  Sender: FDA-Public Use
  Company Number: PL-BAYER-2015-432293

PATIENT
  Age: 81 Year
  Sex: Female
  Weight: 60 kg

DRUGS (9)
  1. OPACORDEN [Concomitant]
     Indication: ATRIAL FIBRILLATION
     Dosage: 1 DF, QD
     Route: 048
  2. ACETYLSALICYLIC ACID({=100 MG) [Suspect]
     Active Substance: ASPIRIN
     Indication: ACUTE MYOCARDIAL INFARCTION
     Dosage: 1 DF, QD
     Route: 048
     Dates: start: 2004, end: 20150723
  3. OPACORDEN [Concomitant]
     Indication: ATRIAL FLUTTER
  4. CLOPIDOGREL [Suspect]
     Active Substance: CLOPIDOGREL BISULFATE
     Indication: ACUTE MYOCARDIAL INFARCTION
     Dosage: 1 DF, QD
     Route: 048
     Dates: start: 20150428
  5. BISOPROLOL [BISOPROLOL] [Concomitant]
     Indication: ACUTE MYOCARDIAL INFARCTION
     Dosage: 1 DF, QD
     Route: 048
  6. ATORVASTATIN [Concomitant]
     Active Substance: ATORVASTATIN
     Indication: HYPERLIPIDAEMIA
  7. XARELTO [Suspect]
     Active Substance: RIVAROXABAN
     Indication: ATRIAL FIBRILLATION
     Dosage: 1 DF, QD
     Route: 048
     Dates: start: 20150428, end: 20150723
  8. XARELTO [Suspect]
     Active Substance: RIVAROXABAN
     Indication: CEREBROVASCULAR ACCIDENT PROPHYLAXIS
  9. ATORVASTATIN [Concomitant]
     Active Substance: ATORVASTATIN
     Indication: LIPOPROTEIN DEFICIENCY
     Dosage: 1 DF, QD
     Route: 048

REACTIONS (1)
  - Anaemia [Recovering/Resolving]

NARRATIVE: CASE EVENT DATE: 20150723
